FAERS Safety Report 21332001 (Version 1)
Quarter: 2022Q3

REPORT INFORMATION
  Report Type: Spontaneous
  Country: US (occurrence: US)
  Receive Date: 20220914
  Receipt Date: 20220914
  Transmission Date: 20221027
  Serious: No
  Sender: FDA-Public Use
  Company Number: US-Adare-2022-US-000029

PATIENT
  Age: 77 Year
  Sex: Female
  Weight: 42.64 kg

DRUGS (1)
  1. PROPRANOLOL [Suspect]
     Active Substance: PROPRANOLOL HYDROCHLORIDE
     Indication: Atrial fibrillation
     Dosage: 1 CAPSULE OF PROPRANOLOL ER 60MG EVERY DAY

REACTIONS (6)
  - Product use in unapproved indication [Unknown]
  - Somnolence [Recovering/Resolving]
  - Dizziness [Recovering/Resolving]
  - Eye irritation [Recovering/Resolving]
  - Disorientation [Recovering/Resolving]
  - Heart rate increased [Recovering/Resolving]
